FAERS Safety Report 5390518-X (Version None)
Quarter: 2007Q3

REPORT INFORMATION
  Report Type: 
  Country: None (occurrence: None)
  Receive Date: 20070718
  Receipt Date: 20060811
  Transmission Date: 20080115
  Serious: No
  Sender: FDA-Public Use
  Company Number: US-KINGPHARMUSA00001-K200601046

PATIENT

DRUGS (7)
  1. LEVOXYL [Suspect]
     Indication: HYPOTHYROIDISM
     Dosage: 75 MCG, QD
     Route: 048
     Dates: start: 20040101
  2. LEVOXYL [Suspect]
     Dosage: 88 MCG, QD
     Route: 048
  3. LEVOXYL [Suspect]
     Dosage: 125 MCG, QD
     Route: 048
  4. LEVOXYL [Suspect]
     Dosage: 137 MCG, QD
     Route: 048
  5. LEVOXYL [Suspect]
     Dosage: 150 MCG, QD
     Route: 048
     Dates: start: 20051201, end: 20060701
  6. LEVOXYL [Suspect]
     Dosage: 137 MCG, QD
     Route: 048
     Dates: start: 20060701, end: 20060101
  7. LEVOXYL [Suspect]
     Dosage: 137 MCG, QD
     Route: 048
     Dates: start: 20060801

REACTIONS (10)
  - ALOPECIA [None]
  - ANXIETY [None]
  - DIARRHOEA [None]
  - DYSPNOEA [None]
  - HAIR TEXTURE ABNORMAL [None]
  - HYPERTHYROIDISM [None]
  - NAUSEA [None]
  - PALPITATIONS [None]
  - THYROID FUNCTION TEST ABNORMAL [None]
  - WEIGHT DECREASED [None]
